FAERS Safety Report 20669467 (Version 1)
Quarter: 2022Q2

REPORT INFORMATION
  Report Type: Spontaneous
  Country: US (occurrence: None)
  Receive Date: 20220403
  Receipt Date: 20220403
  Transmission Date: 20220721
  Serious: Yes (Disabling, Other)
  Sender: FDA-Public Use
  Company Number: None

PATIENT
  Age: 65 Year
  Sex: Female
  Weight: 72 kg

DRUGS (1)
  1. RECLAST [Suspect]
     Active Substance: ZOLEDRONIC ACID
     Indication: Osteoporosis
     Dosage: OTHER QUANTITY : 1 IV INFUSION;?OTHER FREQUENCY : 1X/YEAR;?
     Route: 042
     Dates: start: 20220330, end: 20220330

REACTIONS (14)
  - Influenza like illness [None]
  - Pyrexia [None]
  - Chills [None]
  - Pain [None]
  - Movement disorder [None]
  - Weight bearing difficulty [None]
  - Joint swelling [None]
  - Skin tightness [None]
  - Feeling hot [None]
  - Erythema [None]
  - Arthralgia [None]
  - Diaphragmalgia [None]
  - Gout [None]
  - Arthropathy [None]

NARRATIVE: CASE EVENT DATE: 20220331
